FAERS Safety Report 19294732 (Version 1)
Quarter: 2021Q2

REPORT INFORMATION
  Report Type: Spontaneous
  Country: GB (occurrence: GB)
  Receive Date: 20210524
  Receipt Date: 20210524
  Transmission Date: 20210717
  Serious: Yes (Disabling)
  Sender: FDA-Public Use
  Company Number: GB-ACCORD-225702

PATIENT
  Age: 70 Year
  Sex: Female
  Weight: 50 kg

DRUGS (6)
  1. COSMOCOL [Concomitant]
     Dosage: ONE DAILY
     Dates: start: 20200421
  2. ESTRADIOL. [Concomitant]
     Active Substance: ESTRADIOL
     Dosage: TWICE WEEKLY
     Dates: start: 20200421
  3. EZETIMIBE. [Concomitant]
     Active Substance: EZETIMIBE
     Dosage: TAKE ONE DAILY
     Dates: start: 20200421
  4. LAXIDO [Concomitant]
     Active Substance: POLYETHYLENE GLYCOL 3350\POTASSIUM CHLORIDE\SODIUM BICARBONATE\SODIUM CHLORIDE
     Dosage: ONE DAILY
     Dates: start: 20210414
  5. TACROLIMUS. [Suspect]
     Active Substance: TACROLIMUS
     Indication: PRODUCT USED FOR UNKNOWN INDICATION
     Dosage: 0.03%
     Dates: start: 20191106
  6. MEBEVERINE [Concomitant]
     Active Substance: MEBEVERINE
     Dosage: TAKE ONE 3 TIMES A DAY
     Dates: start: 20200421

REACTIONS (3)
  - Angioedema [Recovered/Resolved]
  - Palpitations [Unknown]
  - Tongue erythema [Unknown]

NARRATIVE: CASE EVENT DATE: 20191111
